FAERS Safety Report 6030187-9 (Version None)
Quarter: 2009Q1

REPORT INFORMATION
  Report Type: 
  Country: None (occurrence: None)
  Receive Date: 20090107
  Receipt Date: 20080814
  Transmission Date: 20090719
  Serious: No
  Sender: FDA-Public Use
  Company Number: US-BAYER-200813427BCC

PATIENT
  Age: 76 Year
  Sex: Female
  Weight: 78 kg

DRUGS (7)
  1. ALEVE [Suspect]
     Indication: ANALGESIA
     Dosage: AS USED: 440/220 MG  UNIT DOSE: 220 MG
     Dates: start: 20080601
  2. NEXIUM [Concomitant]
  3. ACTOS [Concomitant]
  4. VERAPAMIL [Concomitant]
  5. CRESTOR [Concomitant]
  6. ACTONEL [Concomitant]
  7. CLONOPIN [Concomitant]

REACTIONS (1)
  - FATIGUE [None]
